FAERS Safety Report 9723348 (Version 1)
Quarter: 2013Q4

REPORT INFORMATION
  Report Type: Spontaneous
  Country: US (occurrence: US)
  Receive Date: 20131202
  Receipt Date: 20131202
  Transmission Date: 20140711
  Serious: No
  Sender: FDA-Public Use
  Company Number: US-GLAXOSMITHKLINE-A1017897A

PATIENT
  Age: 32 Year
  Sex: 0

DRUGS (2)
  1. FLONASE [Suspect]
     Indication: RHINITIS ALLERGIC
     Dosage: 1SPR TWICE PER DAY
     Route: 045
     Dates: start: 2006
  2. ALLEGRA [Concomitant]

REACTIONS (3)
  - Dysgeusia [Recovered/Resolved]
  - Nausea [Unknown]
  - Product quality issue [Unknown]
